FAERS Safety Report 8338950-6 (Version None)
Quarter: 2012Q2

REPORT INFORMATION
  Report Type: 
  Country: None (occurrence: None)
  Receive Date: 20120507
  Receipt Date: 20120425
  Transmission Date: 20120825
  Serious: Yes (Other)
  Sender: FDA-Public Use
  Company Number: CA-BRISTOL-MYERS SQUIBB COMPANY-16037129

PATIENT
  Age: 60 Year
  Sex: Male
  Weight: 48 kg

DRUGS (3)
  1. ERBITUX [Suspect]
     Indication: HEAD AND NECK CANCER
     Dosage: INF : 5, LAST INF ON 07JUL11
     Route: 042
     Dates: start: 20110525
  2. FLUOROURACIL [Suspect]
     Indication: HEAD AND NECK CANCER
     Dosage: INF : 2, LAST INF ON 23JUN11
     Route: 042
     Dates: start: 20110525, end: 20110623
  3. CISPLATIN [Suspect]
     Indication: HEAD AND NECK CANCER
     Dosage: INF : 2, LAST INF ON 23JUN11
     Route: 042
     Dates: start: 20110525, end: 20110623

REACTIONS (1)
  - PULMONARY EMBOLISM [None]
